FAERS Safety Report 20141339 (Version 2)
Quarter: 2021Q4

REPORT INFORMATION
  Report Type: Report from Study
  Country: NL (occurrence: NL)
  Receive Date: 20211202
  Receipt Date: 20211221
  Transmission Date: 20220303
  Serious: Yes (Hospitalization)
  Sender: FDA-Public Use
  Company Number: NL-BRISTOL-MYERS SQUIBB COMPANY-BMS-2021-128119

PATIENT
  Age: 64 Year
  Sex: Male
  Weight: 88 kg

DRUGS (6)
  1. NIVOLUMAB [Suspect]
     Active Substance: NIVOLUMAB
     Indication: Hormone-refractory prostate cancer
     Dosage: 285 MILLIGRAM
     Route: 042
     Dates: start: 20210914, end: 20210914
  2. IPILIMUMAB [Suspect]
     Active Substance: IPILIMUMAB
     Indication: Hormone-refractory prostate cancer
     Dosage: 95 MILLIGRAM
     Route: 042
     Dates: start: 20210914, end: 20210914
  3. CABAZITAXEL [Suspect]
     Active Substance: CABAZITAXEL
     Indication: Hormone-refractory prostate cancer
     Dosage: 430 MILLIGRAM
     Route: 042
     Dates: start: 20211103
  4. CABAZITAXEL [Suspect]
     Active Substance: CABAZITAXEL
     Dosage: 430 MILLIGRAM
     Route: 042
     Dates: start: 20211109
  5. CARBOPLATIN [Suspect]
     Active Substance: CARBOPLATIN
     Indication: Hormone-refractory prostate cancer
     Dosage: 320 MILLIGRAM
     Route: 042
     Dates: start: 20211103
  6. FENTANYL [Suspect]
     Active Substance: FENTANYL
     Indication: Groin pain
     Route: 065

REACTIONS (3)
  - Vomiting [Not Recovered/Not Resolved]
  - Nausea [Not Recovered/Not Resolved]
  - Groin pain [Not Recovered/Not Resolved]

NARRATIVE: CASE EVENT DATE: 20211115
